FAERS Safety Report 12980079 (Version 1)
Quarter: 2016Q4

REPORT INFORMATION
  Report Type: Spontaneous
  Country: US (occurrence: US)
  Receive Date: 20161128
  Receipt Date: 20161128
  Transmission Date: 20170207
  Serious: Yes (Other)
  Sender: FDA-Public Use
  Company Number: US-BAYER-2016-222154

PATIENT
  Age: 35 Year
  Sex: Female

DRUGS (12)
  1. ACETYLSALICYLIC ACID({=100 MG) [Suspect]
     Active Substance: ASPIRIN
     Dosage: UNK, QD
     Dates: start: 2003
  2. HEPARIN [Concomitant]
     Active Substance: HEPARIN SODIUM
     Dosage: 11250 U, UNK
     Route: 058
  3. HEPARIN [Concomitant]
     Active Substance: HEPARIN SODIUM
     Dosage: 10000 U, UNK
     Route: 058
  4. HEPARIN [Concomitant]
     Active Substance: HEPARIN SODIUM
     Dosage: 5000 U, UNK
     Route: 058
     Dates: start: 2003
  5. ACETYLSALICYLIC ACID({=100 MG) [Suspect]
     Active Substance: ASPIRIN
     Dosage: 81 MG, QD
     Route: 048
     Dates: start: 2000
  6. ACETYLSALICYLIC ACID({=100 MG) [Suspect]
     Active Substance: ASPIRIN
     Dosage: 81 MG, QD
     Dates: start: 2001
  7. HEPARIN [Concomitant]
     Active Substance: HEPARIN SODIUM
     Dosage: 7500 U, UNK
     Route: 058
  8. HEPARIN [Concomitant]
     Active Substance: HEPARIN SODIUM
     Dosage: 7500 U, UNK
     Route: 058
  9. HEPARIN [Concomitant]
     Active Substance: HEPARIN SODIUM
     Dosage: 5000 U, BID
     Route: 058
     Dates: start: 2001
  10. HEPARIN [Concomitant]
     Active Substance: HEPARIN SODIUM
     Dosage: 15000 U, UNK
     Route: 058
  11. HEPARIN [Concomitant]
     Active Substance: HEPARIN SODIUM
     Dosage: 5000 UNITS, BID
     Route: 058
     Dates: start: 2000
  12. HEPARIN [Concomitant]
     Active Substance: HEPARIN SODIUM
     Dosage: 10000 U, UNK
     Route: 058

REACTIONS (2)
  - Oligohydramnios [None]
  - Maternal exposure during pregnancy [None]
